FAERS Safety Report 6716462-0 (Version None)
Quarter: 2010Q2

REPORT INFORMATION
  Report Type: 
  Country: None (occurrence: None)
  Receive Date: 20100507
  Receipt Date: 20100428
  Transmission Date: 20101027
  Serious: Yes (Hospitalization, Other)
  Sender: FDA-Public Use
  Company Number: US-AMGEN-QUU396201

PATIENT
  Sex: Female

DRUGS (2)
  1. ENBREL [Suspect]
     Indication: RHEUMATOID ARTHRITIS
  2. UNSPECIFIED STEROIDS [Concomitant]

REACTIONS (39)
  - ASTHENIA [None]
  - ATELECTASIS [None]
  - BLOOD CULTURE POSITIVE [None]
  - BONE CYST [None]
  - CATHETER SITE INFECTION [None]
  - CHILLS [None]
  - CHOLELITHIASIS [None]
  - DECUBITUS ULCER [None]
  - DIABETES MELLITUS [None]
  - DYSPNOEA [None]
  - DYSURIA [None]
  - ENDOCARDITIS [None]
  - GASTROINTESTINAL TUBE INSERTION [None]
  - HAEMATOMA [None]
  - HEART RATE INCREASED [None]
  - IMMUNOSUPPRESSION [None]
  - IMPAIRED GASTRIC EMPTYING [None]
  - JOINT EFFUSION [None]
  - LEUKOCYTOSIS [None]
  - LUNG NEOPLASM [None]
  - LYMPHADENOPATHY [None]
  - MUCORMYCOSIS [None]
  - MYOSITIS [None]
  - NASAL POLYPS [None]
  - NASAL SEPTUM DEVIATION [None]
  - NAUSEA [None]
  - OSTEOARTHRITIS [None]
  - PAIN [None]
  - PARANASAL CYST [None]
  - PERICARDIAL EFFUSION [None]
  - PLEURITIC PAIN [None]
  - PNEUMONIA [None]
  - PULMONARY CONGESTION [None]
  - RESPIRATORY FAILURE [None]
  - TEMPOROMANDIBULAR JOINT SYNDROME [None]
  - UTERINE CANCER [None]
  - VENTILATION/PERFUSION SCAN ABNORMAL [None]
  - VOCAL CORD DISORDER [None]
  - VOMITING [None]
